FAERS Safety Report 18384169 (Version 1)
Quarter: 2020Q4

REPORT INFORMATION
  Report Type: Spontaneous
  Country: US (occurrence: US)
  Receive Date: 20201014
  Receipt Date: 20201014
  Transmission Date: 20210114
  Serious: No
  Sender: FDA-Public Use
  Company Number: US-INTRA-CELLULAR THERAPIES, INC.-2020ICT00054

PATIENT
  Age: 41 Year
  Sex: Female
  Weight: 97.05 kg

DRUGS (15)
  1. PROPRANOLOL [Concomitant]
     Active Substance: PROPRANOLOL HYDROCHLORIDE
  2. PROTONIX [Concomitant]
     Active Substance: PANTOPRAZOLE SODIUM
  3. BENZTROPINE. [Concomitant]
     Active Substance: BENZTROPINE
  4. NALTREXONE [Concomitant]
     Active Substance: NALTREXONE
  5. MIDODRINE [Concomitant]
     Active Substance: MIDODRINE
  6. TRAZODONE [Concomitant]
     Active Substance: TRAZODONE HYDROCHLORIDE
  7. CAPLYTA [Suspect]
     Active Substance: LUMATEPERONE
     Indication: SCHIZOPHRENIA
     Dosage: 42 MG, 1X/DAY WITH FOOD
     Route: 048
     Dates: start: 20200625
  8. LITHIUM. [Concomitant]
     Active Substance: LITHIUM
  9. ABILIFY [Suspect]
     Active Substance: ARIPIPRAZOLE
     Dosage: UNK
     Dates: end: 20200625
  10. ELETRIPTAN HYDROBROMIDE. [Concomitant]
     Active Substance: ELETRIPTAN HYDROBROMIDE
  11. VISTARIL [Concomitant]
     Active Substance: HYDROXYZINE PAMOATE
  12. MELATONIN [Concomitant]
     Active Substance: MELATONIN
  13. ALBUTEROL. [Concomitant]
     Active Substance: ALBUTEROL
  14. LEVOTHYROXINE. [Concomitant]
     Active Substance: LEVOTHYROXINE
  15. PRAZOSIN. [Concomitant]
     Active Substance: PRAZOSIN

REACTIONS (1)
  - Depressive symptom [Unknown]
